FAERS Safety Report 15208878 (Version 2)
Quarter: 2018Q3

REPORT INFORMATION
  Report Type: Spontaneous
  Country: CA (occurrence: CA)
  Receive Date: 20180727
  Receipt Date: 20180802
  Transmission Date: 20181010
  Serious: Yes (Hospitalization, Other)
  Sender: FDA-Public Use
  Company Number: CA-MYLANLABS-2018M1055901

PATIENT
  Age: 13 Year
  Sex: Male

DRUGS (3)
  1. EPINEPHRINE. [Suspect]
     Active Substance: EPINEPHRINE
     Indication: MULTIPLE ALLERGIES
     Route: 065
  2. EPINEPHRINE. [Suspect]
     Active Substance: EPINEPHRINE
     Indication: FOOD ALLERGY
  3. EPINEPHRINE. [Suspect]
     Active Substance: EPINEPHRINE
     Indication: HYPERSENSITIVITY

REACTIONS (2)
  - Drug ineffective [Unknown]
  - Product storage error [Unknown]

NARRATIVE: CASE EVENT DATE: 2017
